FAERS Safety Report 8537120-6 (Version None)
Quarter: 2012Q3

REPORT INFORMATION
  Report Type: 
  Country: None (occurrence: None)
  Receive Date: 20120725
  Receipt Date: 20120725
  Transmission Date: 20120928
  Serious: Yes (Other)
  Sender: FDA-Public Use
  Company Number: GR-BAYER-2012-074106

PATIENT
  Age: 28 Year
  Sex: Male
  Weight: 65 kg

DRUGS (1)
  1. ULTRAVIST 150 [Suspect]
     Indication: INVESTIGATION
     Route: 042
     Dates: start: 20120711, end: 20120711

REACTIONS (5)
  - ERYTHEMA [None]
  - HYPOGLYCAEMIA [None]
  - VOMITING [None]
  - LACRIMATION INCREASED [None]
  - BRONCHOSPASM [None]
